FAERS Safety Report 10246111 (Version 1)
Quarter: 2014Q2

REPORT INFORMATION
  Report Type: Spontaneous
  Country: US (occurrence: None)
  Receive Date: 20140617
  Receipt Date: 20140617
  Transmission Date: 20141212
  Serious: Yes (Other)
  Sender: FDA-Public Use
  Company Number: FK201402365

PATIENT
  Age: 74 Year
  Sex: Female

DRUGS (1)
  1. LETROZOLE [Suspect]
     Indication: INVASIVE DUCTAL BREAST CARCINOMA
     Dosage: 2.5 MG, D

REACTIONS (5)
  - Pruritus [None]
  - Drug ineffective [None]
  - Erythema [None]
  - Pigmentation disorder [None]
  - Skin reaction [None]
